FAERS Safety Report 8196176-3 (Version None)
Quarter: 2012Q1

REPORT INFORMATION
  Report Type: 
  Country: None (occurrence: None)
  Receive Date: 20120223
  Receipt Date: 20110609
  Transmission Date: 20120608
  Serious: Yes (Disabling)
  Sender: FDA-Public Use
  Company Number: WAES 1106USA01151

PATIENT
  Age: 53 Year
  Sex: Female

DRUGS (1)
  1. ZOCOR [Suspect]
     Indication: BLOOD CHOLESTEROL INCREASED
     Dosage: UNK/UNK/PO
     Route: 048
     Dates: start: 20091001, end: 20100301

REACTIONS (1)
  - MYOPATHY [None]
